FAERS Safety Report 10983219 (Version 1)
Quarter: 2015Q2

REPORT INFORMATION
  Report Type: Spontaneous
  Country: US (occurrence: None)
  Receive Date: 20150402
  Receipt Date: 20150402
  Transmission Date: 20150821
  Serious: Yes (Hospitalization)
  Sender: FDA-Public Use
  Company Number: None

PATIENT
  Age: 73 Year
  Sex: Male

DRUGS (1)
  1. WARFARIN 4MG [Suspect]
     Active Substance: WARFARIN
     Dosage: 1 TABLET
     Route: 048
     Dates: start: 20150305, end: 20150327

REACTIONS (2)
  - Epistaxis [None]
  - Contusion [None]

NARRATIVE: CASE EVENT DATE: 20150327
